FAERS Safety Report 24627594 (Version 1)
Quarter: 2024Q4

REPORT INFORMATION
  Report Type: Spontaneous
  Country: FR (occurrence: FR)
  Receive Date: 20241116
  Receipt Date: 20241116
  Transmission Date: 20250115
  Serious: Yes (Hospitalization, Other)
  Sender: AUROBINDO
  Company Number: FR-AFSSAPS-AVNT2024000831

PATIENT
  Age: 32 Year
  Sex: Female

DRUGS (3)
  1. ALPRAZOLAM [Suspect]
     Active Substance: ALPRAZOLAM
     Indication: Product used for unknown indication
     Dosage: 2 DOSAGE FORM, ONCE A DAY (AT LEAST 2 TABS/DAY)
     Route: 048
     Dates: start: 2018
  2. ZOPICLONE [Suspect]
     Active Substance: ZOPICLONE
     Indication: Product used for unknown indication
     Dosage: 1 DOSAGE FORM, ONCE A DAY (AT LEAST 1 TAB/D)
     Route: 048
     Dates: start: 2018
  3. DAFALGAN CODEINE [Suspect]
     Active Substance: ACETAMINOPHEN\CODEINE PHOSPHATE
     Indication: Product used for unknown indication
     Dosage: UNK (4 BOXES/D)
     Route: 048
     Dates: start: 2018

REACTIONS (5)
  - Hepatitis fulminant [Recovered/Resolved]
  - Drug dependence [Not Recovered/Not Resolved]
  - Disturbance in attention [Recovering/Resolving]
  - Cell death [Recovered/Resolved]
  - Toxicity to various agents [Recovering/Resolving]
